FAERS Safety Report 5503923-5 (Version None)
Quarter: 2007Q4

REPORT INFORMATION
  Report Type: 
  Country: None (occurrence: None)
  Receive Date: 20071101
  Receipt Date: 20071022
  Transmission Date: 20080405
  Serious: Yes (Other)
  Sender: FDA-Public Use
  Company Number: US-ROCHE-492129

PATIENT
  Age: 54 Year
  Sex: Male

DRUGS (3)
  1. PEGASYS [Suspect]
     Indication: HEPATITIS C
     Dosage: REPORTED AS PEGASYS 180 MCG.
     Route: 065
     Dates: start: 20070330, end: 20070907
  2. RIBAVIRIN [Suspect]
     Indication: HEPATITIS C
     Dosage: REPORTED AS RIBAVIRIN 800 MG
     Route: 065
     Dates: start: 20070330, end: 20070907
  3. LOVASTATIN [Suspect]
     Route: 065

REACTIONS (19)
  - ANXIETY [None]
  - BLOOD CREATINE PHOSPHOKINASE INCREASED [None]
  - CHANGE OF BOWEL HABIT [None]
  - CHRONIC OBSTRUCTIVE PULMONARY DISEASE [None]
  - DIARRHOEA [None]
  - DROOLING [None]
  - DRY MOUTH [None]
  - FATIGUE [None]
  - FOOD CRAVING [None]
  - GASTRIC DISORDER [None]
  - INJECTION SITE ERYTHEMA [None]
  - INSOMNIA [None]
  - IRRITABILITY [None]
  - MEMORY IMPAIRMENT [None]
  - NAUSEA [None]
  - RASH PRURITIC [None]
  - SALIVA ALTERED [None]
  - STOMATITIS [None]
  - URTICARIA [None]
